FAERS Safety Report 5322094-1 (Version None)
Quarter: 2007Q2

REPORT INFORMATION
  Report Type: 
  Country: None (occurrence: None)
  Receive Date: 20070507
  Receipt Date: 20070425
  Transmission Date: 20071010
  Serious: Yes (Hospitalization)
  Sender: FDA-Public Use
  Company Number: 2007-01209

PATIENT
  Age: 53 Year
  Sex: Male
  Weight: 80 kg

DRUGS (7)
  1. VELCADE [Suspect]
     Indication: NON-SMALL CELL LUNG CANCER STAGE IIIA
     Dates: start: 20041102, end: 20041203
  2. TAXOL [Suspect]
     Indication: NON-SMALL CELL LUNG CANCER STAGE IIIA
     Dosage: 50.00 MG/M2
     Dates: start: 20041102, end: 20041207
  3. CARBOPLATIN [Suspect]
     Indication: NON-SMALL CELL LUNG CANCER STAGE IIIA
     Dates: start: 20041102, end: 20041207
  4. PREVACID [Concomitant]
  5. ALLEGRA [Concomitant]
  6. TYLENOL W/CODEINE NO.2 (CODEINE PHOSPHATE, PARACETAMOL) [Concomitant]
  7. COMPAZINE [Concomitant]

REACTIONS (8)
  - DIZZINESS [None]
  - HYPOTENSION [None]
  - NIGHT SWEATS [None]
  - NO THERAPEUTIC RESPONSE [None]
  - RADIATION OESOPHAGITIS [None]
  - RADIATION PNEUMONITIS [None]
  - TACHYCARDIA [None]
  - VIRAL INFECTION [None]
